FAERS Safety Report 16749831 (Version 1)
Quarter: 2019Q3

REPORT INFORMATION
  Report Type: Spontaneous
  Country: US (occurrence: US)
  Receive Date: 20190827
  Receipt Date: 20190827
  Transmission Date: 20191005
  Serious: No
  Sender: FDA-Public Use
  Company Number: None

PATIENT
  Age: 67 Year
  Sex: Male
  Weight: 74.25 kg

DRUGS (2)
  1. HYPERRAB [Suspect]
     Active Substance: HUMAN RABIES VIRUS IMMUNE GLOBULIN
     Indication: EXPOSURE TO COMMUNICABLE DISEASE
     Dosage: ?          OTHER FREQUENCY:ONCE;?
     Route: 030
     Dates: start: 20190825, end: 20190825
  2. RABAVERT [Suspect]
     Active Substance: RABIES VIRUS STRAIN FLURY LEP ANTIGEN (PROPIOLACTONE INACTIVATED)
     Indication: EXPOSURE TO COMMUNICABLE DISEASE
     Dosage: 150U ML MILLITRE(S)
     Route: 030
     Dates: start: 20190825, end: 20190825

REACTIONS (2)
  - Injection site extravasation [None]
  - Urticaria [None]

NARRATIVE: CASE EVENT DATE: 20190825
